FAERS Safety Report 7296964-1 (Version None)
Quarter: 2011Q1

REPORT INFORMATION
  Report Type: 
  Country: None (occurrence: None)
  Receive Date: 20110204
  Receipt Date: 20110110
  Transmission Date: 20110831
  Serious: Yes (Other)
  Sender: FDA-Public Use
  Company Number: 2011-0095

PATIENT
  Age: 51 Year
  Sex: Female
  Weight: 81 kg

DRUGS (1)
  1. SOMATULINE DEPOT [Suspect]
     Indication: ACROMEGALY
     Dosage: SEE IMAGE

REACTIONS (4)
  - BREAST CANCER [None]
  - ACROMEGALY [None]
  - OESTROGEN RECEPTOR ASSAY POSITIVE [None]
  - DISEASE PROGRESSION [None]
